FAERS Safety Report 24429482 (Version 2)
Quarter: 2025Q2

REPORT INFORMATION
  Report Type: Report from Study
  Country: US (occurrence: US)
  Receive Date: 20241012
  Receipt Date: 20250506
  Transmission Date: 20250717
  Serious: No
  Sender: AMGEN
  Company Number: US-AMGEN-USASP2024198990

PATIENT
  Age: 68 Year
  Sex: Male

DRUGS (2)
  1. KRYSTEXXA [Suspect]
     Active Substance: PEGLOTICASE
     Indication: Gout
     Dosage: UNK, Q2WK
     Route: 065
     Dates: start: 20240417
  2. WEGOVY [Concomitant]
     Active Substance: SEMAGLUTIDE
     Route: 065
     Dates: start: 2024

REACTIONS (1)
  - Dysgeusia [Unknown]

NARRATIVE: CASE EVENT DATE: 20240101
